FAERS Safety Report 5386002-X (Version None)
Quarter: 2007Q3

REPORT INFORMATION
  Report Type: 
  Country: None (occurrence: None)
  Receive Date: 20070709
  Receipt Date: 20070624
  Transmission Date: 20080115
  Serious: Yes (Life-Threatening)
  Sender: FDA-Public Use
  Company Number: 02100-JPN-07-0309

PATIENT
  Sex: Male

DRUGS (2)
  1. CILOSTAZOL [Suspect]
     Dosage: ORAL
     Route: 048
  2. HEPARIN SODIUM [Concomitant]

REACTIONS (1)
  - THROMBOCYTOPENIA [None]
